FAERS Safety Report 13984397 (Version 4)
Quarter: 2024Q3

REPORT INFORMATION
  Report Type: Report from Study
  Country: NO (occurrence: NO)
  Receive Date: 20170918
  Receipt Date: 20240906
  Transmission Date: 20241016
  Serious: Yes (Death, Hospitalization, Other)
  Sender: MYLAN
  Company Number: NO-MYLANLABS-2017M1058702

PATIENT
  Age: 56 Year
  Sex: Female
  Weight: 76 kg

DRUGS (6)
  1. DEXAMETHASONE [Suspect]
     Active Substance: DEXAMETHASONE
     Indication: Plasma cell myeloma
     Dosage: 20 MILLIGRAM, FREQUENCY TEXT: NOT PROVIDED
     Route: 065
     Dates: start: 20170123, end: 20170206
  2. DEXAMETHASONE [Suspect]
     Active Substance: DEXAMETHASONE
     Dosage: 20 MILLIGRAM, FREQUENCY TEXT: NOT PROVIDED
     Route: 065
     Dates: start: 20170601, end: 20170608
  3. DEXAMETHASONE [Suspect]
     Active Substance: DEXAMETHASONE
     Dosage: 20 MILLIGRAM, FREQUENCY TEXT: NOT PROVIDED
     Route: 065
     Dates: start: 20170425, end: 20170516
  4. POMALIDOMIDE [Suspect]
     Active Substance: POMALIDOMIDE
     Indication: Plasma cell myeloma
     Dosage: 2 MILLIGRAM, FREQUENCY TEXT: NOT PROVIDED
     Route: 048
     Dates: start: 20170425, end: 20170516
  5. POMALIDOMIDE [Suspect]
     Active Substance: POMALIDOMIDE
     Dosage: 2 MILLIGRAM, FREQUENCY TEXT: NOT PROVIDED
     Route: 048
     Dates: start: 20170529, end: 20170607
  6. POMALIDOMIDE [Suspect]
     Active Substance: POMALIDOMIDE
     Dosage: 4 MILLIGRAM, FREQUENCY TEXT: NOT PROVIDED
     Route: 048
     Dates: start: 20170123, end: 20170212

REACTIONS (9)
  - Bacterial infection [Fatal]
  - Staphylococcal infection [Fatal]
  - Pneumonia [Fatal]
  - Anaemia [Recovered/Resolved]
  - Bone pain [Not Recovered/Not Resolved]
  - Angina pectoris [Not Recovered/Not Resolved]
  - Leukopenia [Recovered/Resolved]
  - Pain in extremity [Not Recovered/Not Resolved]
  - Dyspnoea [Not Recovered/Not Resolved]

NARRATIVE: CASE EVENT DATE: 20170504
